FAERS Safety Report 26032759 (Version 2)
Quarter: 2025Q4

REPORT INFORMATION
  Report Type: Report from Study
  Country: US (occurrence: US)
  Receive Date: 20251112
  Receipt Date: 20251202
  Transmission Date: 20260118
  Serious: Yes (Other)
  Sender: ABBVIE
  Company Number: US-ABBVIE-6539496

PATIENT
  Age: 68 Year
  Sex: Female
  Weight: 108.86 kg

DRUGS (11)
  1. SKYRIZI [Suspect]
     Active Substance: RISANKIZUMAB-RZAA
     Indication: Crohn^s disease
     Route: 058
     Dates: start: 202403, end: 2025
  2. SKYRIZI [Suspect]
     Active Substance: RISANKIZUMAB-RZAA
     Route: 058
     Dates: start: 2025
  3. SKYRIZI [Suspect]
     Active Substance: RISANKIZUMAB-RZAA
     Indication: Crohn^s disease
     Dosage: TIME INTERVAL: TOTAL: FORM STRENGTH: 600 MILLIGRAMS, EVERY 4 WEEKS
     Route: 042
     Dates: start: 20231205, end: 20231205
  4. ASCORBIC ACID\IRON [Concomitant]
     Active Substance: ASCORBIC ACID\IRON
     Indication: Mineral supplementation
  5. DoTerra TerraZyme [Concomitant]
     Indication: Enzyme supplementation
  6. ERGOCALCIFEROL [Concomitant]
     Active Substance: ERGOCALCIFEROL
     Indication: Mineral supplementation
  7. Doterra copaiba [Concomitant]
     Indication: Infection prophylaxis
  8. BOS TAURUS BILE [Concomitant]
     Active Substance: BOS TAURUS BILE
     Indication: Product used for unknown indication
  9. OMEPRAZOLE [Concomitant]
     Active Substance: OMEPRAZOLE
     Indication: Gastrooesophageal reflux disease
  10. HERBALS\TURMERIC [Concomitant]
     Active Substance: HERBALS\TURMERIC
     Indication: Nutritional supplementation
  11. POLYETHYLENE GLYCOL [Concomitant]
     Active Substance: POLYETHYLENE GLYCOL
     Indication: Laxative supportive care

REACTIONS (6)
  - Intestinal dilatation [Not Recovered/Not Resolved]
  - Intestinal fistula [Not Recovered/Not Resolved]
  - Gastrointestinal wall thickening [Not Recovered/Not Resolved]
  - Drug ineffective [Not Recovered/Not Resolved]
  - Enteritis [Not Recovered/Not Resolved]
  - Small intestinal stenosis [Not Recovered/Not Resolved]

NARRATIVE: CASE EVENT DATE: 20250101
